FAERS Safety Report 5963045-6 (Version None)
Quarter: 2008Q4

REPORT INFORMATION
  Report Type: 
  Country: None (occurrence: None)
  Receive Date: 20081120
  Receipt Date: 20081027
  Transmission Date: 20090506
  Serious: Yes (Hospitalization, Other)
  Sender: FDA-Public Use
  Company Number: 0262

PATIENT
  Age: 30 Year
  Sex: Female

DRUGS (4)
  1. METHYLDOPA [Suspect]
     Indication: HYPERTENSION
     Dosage: PO
     Route: 048
  2. LABETALOL HYDROCHLORIDE [Suspect]
     Indication: HYPERTENSION
     Dosage: PO
     Route: 048
  3. HYDRALAZINE HYDROCHLORIDE [Concomitant]
  4. INSULIN [Concomitant]

REACTIONS (11)
  - APGAR SCORE LOW [None]
  - BASE EXCESS NEGATIVE [None]
  - BLOOD PH DECREASED [None]
  - BLOOD PRESSURE INADEQUATELY CONTROLLED [None]
  - CAESAREAN SECTION [None]
  - DRUG EXPOSURE DURING PREGNANCY [None]
  - FOETAL GROWTH RETARDATION [None]
  - NEONATAL DISORDER [None]
  - PREMATURE BABY [None]
  - RENAL IMPAIRMENT [None]
  - SMALL FOR DATES BABY [None]
